FAERS Safety Report 12618524 (Version 1)
Quarter: 2016Q3

REPORT INFORMATION
  Report Type: Spontaneous
  Country: US (occurrence: None)
  Receive Date: 20160802
  Receipt Date: 20160802
  Transmission Date: 20161109
  Serious: Yes (Other)
  Sender: FDA-Public Use
  Company Number: None

PATIENT
  Age: 65 Year
  Sex: Male
  Weight: 108.86 kg

DRUGS (1)
  1. CARBADOPA LEVODOPA [Suspect]
     Active Substance: CARBIDOPA\LEVODOPA
     Route: 048
     Dates: start: 20160729, end: 20160730

REACTIONS (1)
  - Vomiting [None]

NARRATIVE: CASE EVENT DATE: 20160729
